FAERS Safety Report 12079743 (Version 7)
Quarter: 2017Q2

REPORT INFORMATION
  Report Type: Spontaneous
  Country: BR (occurrence: BR)
  Receive Date: 20160216
  Receipt Date: 20170410
  Transmission Date: 20170829
  Serious: Yes (Other)
  Sender: FDA-Public Use
  Company Number: BR-JNJFOC-20160210241

PATIENT
  Sex: Female
  Weight: 81.7 kg

DRUGS (5)
  1. FOLIC ACID. [Concomitant]
     Active Substance: FOLIC ACID
     Route: 065
  2. NIMESULIDE [Concomitant]
     Active Substance: NIMESULIDE
     Route: 065
  3. PREDNISONE. [Concomitant]
     Active Substance: PREDNISONE
     Route: 065
  4. METHOTREXATE. [Concomitant]
     Active Substance: METHOTREXATE
     Route: 065
  5. SIMPONI [Suspect]
     Active Substance: GOLIMUMAB
     Indication: RHEUMATOID ARTHRITIS
     Route: 058
     Dates: start: 20151221, end: 20160527

REACTIONS (9)
  - Fatigue [Not Recovered/Not Resolved]
  - Sinusitis [Not Recovered/Not Resolved]
  - Rhinitis [Not Recovered/Not Resolved]
  - Drug ineffective [Unknown]
  - Peripheral swelling [Unknown]
  - Dyspnoea [Recovered/Resolved]
  - Influenza like illness [Unknown]
  - Bedridden [Unknown]
  - Chest pain [Recovered/Resolved]
